FAERS Safety Report 9836907 (Version 2)
Quarter: 2014Q2

REPORT INFORMATION
  Report Type: Spontaneous
  Country: US (occurrence: None)
  Receive Date: 20131205
  Receipt Date: 20140416
  Transmission Date: 20141212
  Serious: No
  Sender: FDA-Public Use
  Company Number: 163-POMAL-13090104

PATIENT
  Age: 49 Year
  Sex: Female
  Weight: 63.5 kg

DRUGS (16)
  1. POMALYST [Suspect]
     Indication: PLASMA CELL MYELOMA
     Dosage: 21 IN 21 D
     Route: 048
     Dates: start: 20130803
  2. ALEVE (NAPROXEN SODIUM) [Concomitant]
  3. AMBIEN (ZOLPIDEM TARTRATE) [Concomitant]
  4. B100 COMPLEX [Concomitant]
  5. CYCLOPHOSPHAMIDE (CYCLOPHOSPAMIDE) [Concomitant]
  6. DEXAMETHASONE (DEXAMETHASONE) [Concomitant]
  7. DILANTIN(PHENYTOIN SODIUM)(UNKNOWN) [Concomitant]
  8. DILAUDID(HYDROMORPHONE HYDROCHLORIDE) [Concomitant]
  9. PERCOCET(OXYCOCET) [Concomitant]
  10. POTASSIUM(POTASSIUM) [Concomitant]
  11. PROMETHAZINE(PROMETHAZINE) [Concomitant]
  12. PROTONIX [Concomitant]
  13. VITAMIN B COMPLEX(B-KOMPLEX ^LECIVA^) [Concomitant]
  14. XANAX(ALPRAZOLAM) [Concomitant]
  15. ZOFRAN(ONDANSETRON HYDROCHLORIDE) [Concomitant]
  16. ZOLOFT(SERTRALINE HYDROCHLORIDE) [Concomitant]

REACTIONS (8)
  - Skin exfoliation [None]
  - Night sweats [None]
  - Somnolence [None]
  - Fatigue [None]
  - Confusional state [None]
  - Pyrexia [None]
  - Nausea [None]
  - Peripheral swelling [None]
